FAERS Safety Report 20422995 (Version 1)
Quarter: 2022Q1

REPORT INFORMATION
  Report Type: Spontaneous
  Country: US (occurrence: US)
  Receive Date: 20220203
  Receipt Date: 20220203
  Transmission Date: 20220423
  Serious: No
  Sender: FDA-Public Use
  Company Number: US-GILEAD-2022-0567951

PATIENT
  Sex: Male

DRUGS (1)
  1. SOFOSBUVIR\VELPATASVIR [Suspect]
     Active Substance: SOFOSBUVIR\VELPATASVIR
     Indication: Hepatitis C
     Dosage: 1 DOSAGE FORM, QD
     Route: 048

REACTIONS (7)
  - Product dose omission in error [Recovered/Resolved]
  - Headache [Unknown]
  - Diarrhoea [Unknown]
  - Hot flush [Unknown]
  - COVID-19 [Unknown]
  - Asthenia [Unknown]
  - Malaise [Unknown]
